FAERS Safety Report 10362713 (Version 2)
Quarter: 2014Q3

REPORT INFORMATION
  Report Type: Spontaneous
  Country: US (occurrence: US)
  Receive Date: 20140805
  Receipt Date: 20140808
  Transmission Date: 20150326
  Serious: Yes (Death, Other)
  Sender: FDA-Public Use
  Company Number: US-PFIZER INC-2014212313

PATIENT
  Age: 62 Year
  Sex: Female

DRUGS (12)
  1. INSULIN [Concomitant]
     Active Substance: INSULIN NOS
     Dosage: UNK
  2. PIPERACILLIN/TAZOBACTAM [Concomitant]
     Dosage: UNK
  3. GLIPIZIDE. [Concomitant]
     Active Substance: GLIPIZIDE
     Dosage: UNK
  4. SOLU-MEDROL [Concomitant]
     Active Substance: METHYLPREDNISOLONE SODIUM SUCCINATE
     Dosage: UNK
  5. METOLAZONE. [Concomitant]
     Active Substance: METOLAZONE
     Dosage: UNK
  6. METHOTREXATE SODIUM. [Suspect]
     Active Substance: METHOTREXATE SODIUM
     Indication: PSORIASIS
     Dosage: 12.5 MG, WEEKLY
  7. METHOTREXATE SODIUM. [Interacting]
     Active Substance: METHOTREXATE SODIUM
     Indication: PSORIASIS
     Dosage: 12.5 MG, WEEKLY
  8. IBUPROFEN. [Interacting]
     Active Substance: IBUPROFEN
     Dosage: UNK
  9. ESOMEPRAZOLE MAGNESIUM. [Interacting]
     Active Substance: ESOMEPRAZOLE MAGNESIUM
     Dosage: UNK
  10. VANCOMYCIN [Concomitant]
     Active Substance: VANCOMYCIN
     Dosage: UNK
  11. ASPIRIN. [Interacting]
     Active Substance: ASPIRIN
     Dosage: UNK
  12. FUROSEMIDE. [Concomitant]
     Active Substance: FUROSEMIDE
     Dosage: UNK

REACTIONS (4)
  - Drug interaction [Unknown]
  - Psoriasis [Fatal]
  - Pancytopenia [Unknown]
  - Toxicity to various agents [Unknown]

NARRATIVE: CASE EVENT DATE: 1996
